FAERS Safety Report 10695568 (Version 1)
Quarter: 2015Q1

REPORT INFORMATION
  Report Type: Spontaneous
  Country: US (occurrence: None)
  Receive Date: 20150106
  Receipt Date: 20150106
  Transmission Date: 20150721
  Serious: No
  Sender: FDA-Public Use
  Company Number: None

PATIENT
  Age: 37 Year
  Sex: Female
  Weight: 68.95 kg

DRUGS (1)
  1. HYDROCODONE BITARTRATE AND ACETAMINOPHEN [Suspect]
     Active Substance: ACETAMINOPHEN\HYDROCODONE BITARTRATE
     Indication: BACK PAIN
     Route: 048
     Dates: start: 20141218, end: 20150105

REACTIONS (3)
  - Product quality issue [None]
  - Product substitution issue [None]
  - Drug effect decreased [None]

NARRATIVE: CASE EVENT DATE: 20141218
